FAERS Safety Report 14243457 (Version 1)
Quarter: 2017Q4

REPORT INFORMATION
  Report Type: Spontaneous
  Country: US (occurrence: None)
  Receive Date: 20171130
  Receipt Date: 20171130
  Transmission Date: 20180321
  Serious: Yes (Hospitalization)
  Sender: FDA-Public Use
  Company Number: None

PATIENT
  Age: 17 Year
  Sex: Male

DRUGS (6)
  1. LISINOPRIL. [Concomitant]
     Active Substance: LISINOPRIL
  2. EPOGEN [Concomitant]
     Active Substance: ERYTHROPOIETIN
  3. PROCRIT [Suspect]
     Active Substance: ERYTHROPOIETIN
     Indication: RENAL TRANSPLANT
     Route: 058
     Dates: start: 20170526
  4. VITAMIN D [Concomitant]
     Active Substance: CHOLECALCIFEROL
  5. LIPITOR [Concomitant]
     Active Substance: ATORVASTATIN CALCIUM
  6. IRON [Concomitant]
     Active Substance: IRON

REACTIONS (2)
  - Infection [None]
  - Drug dose omission [None]

NARRATIVE: CASE EVENT DATE: 201711
